FAERS Safety Report 6167454-4 (Version None)
Quarter: 2009Q2

REPORT INFORMATION
  Report Type: 
  Country: None (occurrence: None)
  Receive Date: 20090424
  Receipt Date: 20090423
  Transmission Date: 20091009
  Serious: Yes (Death)
  Sender: FDA-Public Use
  Company Number: US-BRISTOL-MYERS SQUIBB COMPANY-14574263

PATIENT
  Age: 52 Year
  Sex: Male

DRUGS (4)
  1. ABILIFY [Suspect]
     Indication: PSYCHOTIC DISORDER
     Route: 048
     Dates: start: 20051110
  2. LEXAPRO [Suspect]
     Route: 048
     Dates: start: 20051101
  3. ATENOLOL [Concomitant]
  4. PREVACID [Concomitant]

REACTIONS (1)
  - SUDDEN DEATH [None]
